FAERS Safety Report 9814621 (Version 3)
Quarter: 2014Q1

REPORT INFORMATION
  Report Type: Spontaneous
  Country: GB (occurrence: GB)
  Receive Date: 20140113
  Receipt Date: 20140206
  Transmission Date: 20141002
  Serious: Yes (Hospitalization)
  Sender: FDA-Public Use
  Company Number: PHFR2014GB000587

PATIENT
  Age: 75 Year
  Sex: Female

DRUGS (6)
  1. CLOZARIL [Suspect]
     Indication: SCHIZOPHRENIA
     Dosage: 300 MG, QD
     Route: 048
     Dates: start: 20040806
  2. LAMOTRIGINE [Concomitant]
     Indication: SCHIZOPHRENIA
     Dosage: 50 MG, DAILY
     Route: 048
  3. LOFEPRAMINE [Concomitant]
     Indication: DEPRESSION
     Dosage: 210 MG, DAILY
     Route: 048
  4. ASPIRIN [Concomitant]
     Indication: MYOCARDIAL ISCHAEMIA
     Dosage: 75 MG, DAILY
     Route: 048
  5. THYROXINE [Concomitant]
     Indication: HYPOTHYROIDISM
     Dosage: 50/75 UG, UNK
     Route: 048
  6. LITHIUM CARBONATE [Concomitant]
     Indication: DEPRESSION
     Dosage: 400 MG, DAILY
     Route: 048

REACTIONS (8)
  - Renal injury [Unknown]
  - Urinary tract infection [Recovered/Resolved]
  - Renal impairment [Unknown]
  - Renal failure acute [Recovered/Resolved]
  - Hypotension [Unknown]
  - White blood cell count increased [Recovered/Resolved]
  - Neutrophil count increased [Recovered/Resolved]
  - Platelet count increased [Unknown]
